FAERS Safety Report 25966605 (Version 1)
Quarter: 2025Q4

REPORT INFORMATION
  Report Type: Spontaneous
  Country: EU (occurrence: EU)
  Receive Date: 20251028
  Receipt Date: 20251028
  Transmission Date: 20260118
  Serious: Yes (Other)
  Sender: AUROBINDO
  Company Number: EU-BRISTOL-MYERS SQUIBB COMPANY-BMS-2018-014864

PATIENT
  Age: 58 Year
  Sex: Female

DRUGS (8)
  1. VINORELBINE [Suspect]
     Active Substance: VINORELBINE TARTRATE
     Indication: Invasive ductal breast carcinoma
     Dosage: 60 MILLIGRAM/SQ. METER Q3WK, DAY 1 AND 8 EVERY 21 DAYS
     Route: 065
  2. VINORELBINE [Suspect]
     Active Substance: VINORELBINE TARTRATE
     Indication: Breast cancer
  3. VINORELBINE [Suspect]
     Active Substance: VINORELBINE TARTRATE
     Indication: Breast cancer metastatic
  4. CAPECITABINE [Suspect]
     Active Substance: CAPECITABINE
     Indication: Invasive ductal breast carcinoma
     Dosage: 1000 MILLIGRAM/SQ. METER, TWO TIMES A DAY,DAY 1 TO14 EVERY 21 DAYS; LATER REDUCED BY 25%
     Route: 065
     Dates: start: 201210, end: 2013
  5. CAPECITABINE [Suspect]
     Active Substance: CAPECITABINE
     Indication: Breast cancer
     Dosage: 1 DOSAGE FORM DOSE WAS REDUCED BY 25% AND THEN CONTINUED
     Route: 065
  6. CAPECITABINE [Suspect]
     Active Substance: CAPECITABINE
     Indication: Breast cancer metastatic
     Dosage: 750 MILLIGRAM/SQ. METER, TWO TIMES A DAY, (2/DAY) FROM DAY 1 TO DAY 14 EVERY 21 DAYS
     Route: 065
     Dates: start: 2013
  7. DASATINIB [Concomitant]
     Active Substance: DASATINIB
     Indication: Chronic myeloid leukaemia
     Dosage: 100 MILLIGRAM, ONCE A DAY
     Route: 048
     Dates: start: 201005
  8. VINORELBINE [Concomitant]
     Active Substance: VINORELBINE TARTRATE
     Indication: Breast cancer metastatic
     Dosage: 60 MILLIGRAM/SQ. METER, CYCLICAL ( ON DAY 1, 8 EVERY 21 DAYS )
     Route: 065
     Dates: start: 2012

REACTIONS (3)
  - Neutropenia [Unknown]
  - Diarrhoea [Unknown]
  - Toxicity to various agents [Unknown]

NARRATIVE: CASE EVENT DATE: 20130101
